FAERS Safety Report 24234388 (Version 1)
Quarter: 2024Q3

REPORT INFORMATION
  Report Type: Spontaneous
  Country: US (occurrence: None)
  Receive Date: 20240821
  Receipt Date: 20240821
  Transmission Date: 20241017
  Serious: Yes (Other)
  Sender: Public
  Company Number: None

PATIENT
  Age: 75 Year
  Sex: Female

DRUGS (1)
  1. SKYRIZI [Suspect]
     Active Substance: RISANKIZUMAB-RZAA
     Indication: Psoriasis
     Dosage: OTHER FREQUENCY : WK4ANDEVERY12WKSTHEREAFTER ;?

REACTIONS (7)
  - Transient ischaemic attack [None]
  - Rash morbilliform [None]
  - Diarrhoea [None]
  - Faeces discoloured [None]
  - Vomiting [None]
  - Weight decreased [None]
  - Scab [None]
